FAERS Safety Report 8369967-3 (Version None)
Quarter: 2012Q2

REPORT INFORMATION
  Report Type: 
  Country: None (occurrence: None)
  Receive Date: 20120518
  Receipt Date: 20120514
  Transmission Date: 20120825
  Serious: No
  Sender: FDA-Public Use
  Company Number: US-PFIZER INC-2012117214

PATIENT
  Sex: Male
  Weight: 86.168 kg

DRUGS (2)
  1. IBUPROFEN (ADVIL) [Suspect]
     Indication: ANTIINFLAMMATORY THERAPY
     Dosage: 2 DF, 3X/DAY
     Route: 048
  2. IBUPROFEN (ADVIL) [Suspect]
     Indication: ANALGESIC THERAPY

REACTIONS (2)
  - PRURITUS [None]
  - EXPIRED DRUG ADMINISTERED [None]
